FAERS Safety Report 26210822 (Version 1)
Quarter: 2025Q4

REPORT INFORMATION
  Report Type: Spontaneous
  Country: US (occurrence: US)
  Receive Date: 20251230
  Receipt Date: 20251230
  Transmission Date: 20260118
  Serious: Yes (Hospitalization, Other)
  Sender: CHEPLAPHARM
  Company Number: US-CHEPLA-2025014458

PATIENT
  Sex: Male

DRUGS (14)
  1. QUETIAPINE [Suspect]
     Active Substance: QUETIAPINE
     Indication: Product used for unknown indication
  2. NUPLAZID [Suspect]
     Active Substance: PIMAVANSERIN TARTRATE
     Indication: Parkinson^s disease
     Dosage: DAILY DOSE: 10 MILLIGRAM
     Route: 048
     Dates: start: 202510
  3. NUPLAZID [Suspect]
     Active Substance: PIMAVANSERIN TARTRATE
     Indication: Drug ineffective
     Dosage: DAILY DOSE: 10 MILLIGRAM
     Route: 048
     Dates: start: 202510
  4. NUPLAZID [Suspect]
     Active Substance: PIMAVANSERIN TARTRATE
     Indication: Restless legs syndrome
     Dosage: DAILY DOSE: 10 MILLIGRAM
     Route: 048
     Dates: start: 202510
  5. NUPLAZID [Suspect]
     Active Substance: PIMAVANSERIN TARTRATE
     Indication: Parkinson^s disease psychosis
     Dosage: DAILY DOSE: 10 MILLIGRAM
     Route: 048
     Dates: start: 202510
  6. NUPLAZID [Suspect]
     Active Substance: PIMAVANSERIN TARTRATE
     Indication: Underdose
     Dosage: DAILY DOSE: 10 MILLIGRAM
     Route: 048
     Dates: start: 202510
  7. NUPLAZID [Suspect]
     Active Substance: PIMAVANSERIN TARTRATE
     Indication: Insomnia
     Dosage: DAILY DOSE: 10 MILLIGRAM
     Route: 048
     Dates: start: 202510
  8. NUPLAZID [Suspect]
     Active Substance: PIMAVANSERIN TARTRATE
     Indication: Parkinson^s disease
     Dosage: DAILY DOSE: 34 MILLIGRAM
     Route: 048
     Dates: start: 20251008
  9. NUPLAZID [Suspect]
     Active Substance: PIMAVANSERIN TARTRATE
     Indication: Drug ineffective
     Dosage: DAILY DOSE: 34 MILLIGRAM
     Route: 048
     Dates: start: 20251008
  10. NUPLAZID [Suspect]
     Active Substance: PIMAVANSERIN TARTRATE
     Indication: Restless legs syndrome
     Dosage: DAILY DOSE: 34 MILLIGRAM
     Route: 048
     Dates: start: 20251008
  11. NUPLAZID [Suspect]
     Active Substance: PIMAVANSERIN TARTRATE
     Indication: Parkinson^s disease psychosis
     Dosage: DAILY DOSE: 34 MILLIGRAM
     Route: 048
     Dates: start: 20251008
  12. NUPLAZID [Suspect]
     Active Substance: PIMAVANSERIN TARTRATE
     Indication: Underdose
     Dosage: DAILY DOSE: 34 MILLIGRAM
     Route: 048
     Dates: start: 20251008
  13. NUPLAZID [Suspect]
     Active Substance: PIMAVANSERIN TARTRATE
     Indication: Insomnia
     Dosage: DAILY DOSE: 34 MILLIGRAM
     Route: 048
     Dates: start: 20251008
  14. CARBIDOPA [Concomitant]
     Active Substance: CARBIDOPA

REACTIONS (11)
  - Ammonia increased [Not Recovered/Not Resolved]
  - Decubitus ulcer [Not Recovered/Not Resolved]
  - Contusion [Not Recovered/Not Resolved]
  - Somnolence [Not Recovered/Not Resolved]
  - Hallucination, visual [Recovering/Resolving]
  - Aphasia [Recovering/Resolving]
  - Limb immobilisation [Not Recovered/Not Resolved]
  - Loss of personal independence in daily activities [Not Recovered/Not Resolved]
  - Gait inability [Not Recovered/Not Resolved]
  - Fall [Not Recovered/Not Resolved]
  - Insomnia [Not Recovered/Not Resolved]
